FAERS Safety Report 7844833-8 (Version None)
Quarter: 2011Q4

REPORT INFORMATION
  Report Type: 
  Country: None (occurrence: None)
  Receive Date: 20111025
  Receipt Date: 20111014
  Transmission Date: 20120403
  Serious: Yes (Hospitalization)
  Sender: FDA-Public Use
  Company Number: US-GLAXOSMITHKLINE-B0700911A

PATIENT
  Sex: Male

DRUGS (1)
  1. AVANDAMET [Suspect]
     Indication: DIABETES MELLITUS
     Route: 048
     Dates: start: 20060908, end: 20090622

REACTIONS (5)
  - LEFT ATRIAL DILATATION [None]
  - HYPERLIPIDAEMIA [None]
  - ELECTROCARDIOGRAM ABNORMAL [None]
  - CHEST PAIN [None]
  - ARRHYTHMIA [None]
